FAERS Safety Report 8563830-0 (Version None)
Quarter: 2012Q3

REPORT INFORMATION
  Report Type: 
  Country: None (occurrence: None)
  Receive Date: 20120727
  Receipt Date: 20120727
  Transmission Date: 20120928
  Serious: Yes (Hospitalization)
  Sender: FDA-Public Use
  Company Number: None

PATIENT
  Age: 82 Year
  Sex: Male
  Weight: 87.27 kg

DRUGS (9)
  1. NAPROSYN [Suspect]
     Indication: ARTHRITIS
     Dosage: 500 MG BID, PO
     Route: 048
  2. SIMVASTATIN [Concomitant]
  3. M.V.I. [Concomitant]
  4. BACTRIM DS [Concomitant]
  5. PREDNISONE TAB [Suspect]
     Indication: INTERSTITIAL LUNG DISEASE
     Dosage: 30 MG DAILY, PO
     Route: 048
  6. TERAZOSIN HYDROCHLORIDE [Concomitant]
  7. AMBIEN [Concomitant]
  8. OMEPRAZOLE [Concomitant]
  9. ASPIRIN [Suspect]
     Indication: CORONARY ARTERY DISEASE
     Dosage: 81MG DAILY, PO
     Route: 048

REACTIONS (2)
  - DIVERTICULUM INTESTINAL HAEMORRHAGIC [None]
  - UPPER GASTROINTESTINAL HAEMORRHAGE [None]
